FAERS Safety Report 9384788 (Version 1)
Quarter: 2013Q3

REPORT INFORMATION
  Report Type: Spontaneous
  Country: US (occurrence: US)
  Receive Date: 20130705
  Receipt Date: 20130705
  Transmission Date: 20140515
  Serious: Yes (Other)
  Sender: FDA-Public Use
  Company Number: US-ROCHE-1244160

PATIENT
  Age: 56 Year
  Sex: Female
  Weight: 72.64 kg

DRUGS (3)
  1. HERCEPTIN [Suspect]
     Indication: BREAST CANCER
     Route: 065
  2. SYNTHYROID [Suspect]
     Indication: HYPOTHYROIDISM
     Route: 065
  3. XANAX [Concomitant]
     Route: 065

REACTIONS (5)
  - Breast cancer [Recovered/Resolved]
  - Nausea [Unknown]
  - Gait disturbance [Unknown]
  - Blood thyroid stimulating hormone increased [Unknown]
  - Balance disorder [Unknown]
